FAERS Safety Report 12755429 (Version 1)
Quarter: 2016Q3

REPORT INFORMATION
  Report Type: Spontaneous
  Country: IT (occurrence: IT)
  Receive Date: 20160916
  Receipt Date: 20160916
  Transmission Date: 20161109
  Serious: Yes (Hospitalization)
  Sender: FDA-Public Use
  Company Number: IT-ASTRAZENECA-2016SE96933

PATIENT
  Age: 17288 Day
  Sex: Female
  Weight: 97 kg

DRUGS (5)
  1. ATENOLOLO EG [Concomitant]
  2. METFORMINA TEVA ITALIA [Concomitant]
  3. COVERLAM [Concomitant]
     Active Substance: AMLODIPINE BESYLATE\PERINDOPRIL ARGININE
  4. GLICLAZIDE KRKA [Concomitant]
  5. BYDUREON [Suspect]
     Active Substance: EXENATIDE
     Indication: DIABETES MELLITUS
     Route: 065
     Dates: start: 2016, end: 2016

REACTIONS (7)
  - Confusional state [Unknown]
  - Blood glucose increased [Unknown]
  - Hypotension [Unknown]
  - Dehydration [Unknown]
  - Pyrexia [Unknown]
  - Diarrhoea [Unknown]
  - Heart rate increased [Unknown]

NARRATIVE: CASE EVENT DATE: 20160901
